FAERS Safety Report 5729568-X (Version None)
Quarter: 2008Q2

REPORT INFORMATION
  Report Type: 
  Country: None (occurrence: None)
  Receive Date: 20080501
  Receipt Date: 20080421
  Transmission Date: 20081010
  Serious: Yes (Hospitalization)
  Sender: FDA-Public Use
  Company Number: 2008AP001046

PATIENT
  Age: 64 Year
  Sex: Female

DRUGS (4)
  1. CIPROFLOXACIN [Suspect]
     Indication: URINARY TRACT INFECTION
  2. CLOZAPINE [Suspect]
     Indication: SCHIZOAFFECTIVE DISORDER
  3. ZIPRASIDONE HCL [Concomitant]
  4. OLANZAPINE [Concomitant]

REACTIONS (11)
  - CARDIOMYOPATHY [None]
  - CONFUSIONAL STATE [None]
  - DELIRIUM [None]
  - DRUG INTERACTION [None]
  - DRUG TOXICITY [None]
  - ELECTROCARDIOGRAM QT PROLONGED [None]
  - IRRITABILITY [None]
  - MYOCARDITIS [None]
  - PERIPHERAL COLDNESS [None]
  - PSYCHOTIC DISORDER [None]
  - UROSEPSIS [None]
